FAERS Safety Report 11208376 (Version 3)
Quarter: 2015Q3

REPORT INFORMATION
  Report Type: Report from Study
  Country: US (occurrence: US)
  Receive Date: 20150622
  Receipt Date: 20150701
  Transmission Date: 20151125
  Serious: Yes (Hospitalization)
  Sender: FDA-Public Use
  Company Number: US-JNJFOC-20150614701

PATIENT
  Age: 16 Year
  Sex: Female
  Weight: 41.5 kg

DRUGS (2)
  1. METHOTREXATE [Concomitant]
     Active Substance: METHOTREXATE
     Route: 065
  2. REMICADE [Suspect]
     Active Substance: INFLIXIMAB
     Indication: INFLAMMATORY BOWEL DISEASE
     Route: 042
     Dates: start: 20090630, end: 20110120

REACTIONS (1)
  - Splenic haematoma [Recovered/Resolved]

NARRATIVE: CASE EVENT DATE: 20150327
